FAERS Safety Report 6724541-7 (Version None)
Quarter: 2010Q2

REPORT INFORMATION
  Report Type: 
  Country: None (occurrence: None)
  Receive Date: 20100513
  Receipt Date: 20100505
  Transmission Date: 20101027
  Serious: Yes (Other)
  Sender: FDA-Public Use
  Company Number: US-PFIZER INC-2010033415

PATIENT
  Sex: Female
  Weight: 65.76 kg

DRUGS (4)
  1. CHANTIX [Suspect]
     Indication: SMOKING CESSATION THERAPY
     Dosage: 0.5 MG, 1X/DAY
     Route: 048
     Dates: start: 20100227, end: 20100503
  2. CHANTIX [Suspect]
     Dosage: 1 MG, UNK
     Route: 048
     Dates: start: 20100101, end: 20100101
  3. NICORETTE [Suspect]
     Indication: NICOTINE DEPENDENCE
     Dosage: 4 MG, 3X/DAY
     Route: 048
     Dates: start: 20100101
  4. ADVAIR DISKUS 100/50 [Concomitant]
     Indication: ASTHMA
     Dosage: UNK

REACTIONS (2)
  - CONFUSIONAL STATE [None]
  - DEPRESSED MOOD [None]
